FAERS Safety Report 6983606-5 (Version None)
Quarter: 2010Q3

REPORT INFORMATION
  Report Type: 
  Country: None (occurrence: None)
  Receive Date: 20100914
  Receipt Date: 20080905
  Transmission Date: 20110219
  Serious: No
  Sender: FDA-Public Use
  Company Number: US-WYE-H05925608

PATIENT
  Age: 46 Year
  Sex: Female
  Weight: 52.66 kg

DRUGS (1)
  1. ADVIL LIQUI-GELS [Suspect]
     Indication: INFLAMMATION
     Dosage: 2 CAPLETS AS NEEDED
     Route: 048
     Dates: start: 20080101, end: 20080904

REACTIONS (1)
  - HEPATIC PAIN [None]
